FAERS Safety Report 16741095 (Version 1)
Quarter: 2019Q4

REPORT INFORMATION
  Report Type: Spontaneous
  Country: US (occurrence: US)
  Receive Date: 20190826
  Receipt Date: 20190826
  Transmission Date: 20200122
  Serious: No
  Sender: FDA-Public Use
  Company Number: None

PATIENT
  Age: 75 Year
  Sex: Male
  Weight: 54.1 kg

DRUGS (2)
  1. LUPRON [Suspect]
     Active Substance: LEUPROLIDE ACETATE
     Indication: PROSTATE CANCER
     Dosage: ?          OTHER FREQUENCY:EVERY 12 WEEKS;?
     Route: 030
  2. LUPRON 22.5 MG IM PFS [Concomitant]

REACTIONS (4)
  - Needle issue [None]
  - Hepatitis B virus test [None]
  - HIV test [None]
  - Device malfunction [None]

NARRATIVE: CASE EVENT DATE: 20190824
